FAERS Safety Report 8269933-2 (Version None)
Quarter: 2012Q2

REPORT INFORMATION
  Report Type: 
  Country: None (occurrence: None)
  Receive Date: 20120410
  Receipt Date: 20120404
  Transmission Date: 20120825
  Serious: No
  Sender: FDA-Public Use
  Company Number: US-PFIZER INC-2012085883

PATIENT
  Sex: Female
  Weight: 68.027 kg

DRUGS (3)
  1. LORTAB [Concomitant]
     Dosage: UNK
  2. RELPAX [Suspect]
     Dosage: 40 MG, AS NEEDED
     Route: 048
  3. RELPAX [Suspect]
     Indication: MIGRAINE
     Dosage: 20 MG, AS NEEDED
     Route: 048
     Dates: start: 20040101

REACTIONS (2)
  - HEADACHE [None]
  - DRUG INEFFECTIVE [None]
